FAERS Safety Report 7556499-5 (Version None)
Quarter: 2011Q2

REPORT INFORMATION
  Report Type: 
  Country: None (occurrence: None)
  Receive Date: 20110615
  Receipt Date: 20110615
  Transmission Date: 20111010
  Serious: Yes (Hospitalization)
  Sender: FDA-Public Use
  Company Number: None

PATIENT
  Age: 38 Year
  Sex: Male
  Weight: 84.369 kg

DRUGS (1)
  1. APRISO [Suspect]
     Indication: COLITIS
     Dosage: 0,375G 4-8 PO
     Route: 048
     Dates: start: 20110420, end: 20110607

REACTIONS (3)
  - COUGH [None]
  - INSOMNIA [None]
  - DYSPNOEA [None]
